FAERS Safety Report 25500256 (Version 1)
Quarter: 2025Q3

REPORT INFORMATION
  Report Type: Spontaneous
  Country: US (occurrence: None)
  Receive Date: 20250701
  Receipt Date: 20250701
  Transmission Date: 20251020
  Serious: Yes (Other)
  Sender: FDA-CTU
  Company Number: None

PATIENT
  Age: 56 Year
  Sex: Female
  Weight: 69.75 kg

DRUGS (8)
  1. ZYRTEC [Suspect]
     Active Substance: CETIRIZINE HYDROCHLORIDE
     Indication: Multiple allergies
  2. CLARITIN [Suspect]
     Active Substance: LORATADINE
     Indication: Multiple allergies
  3. DEVICE [Concomitant]
     Active Substance: DEVICE
  4. LISINOPRIL [Concomitant]
     Active Substance: LISINOPRIL
  5. EPINEPHRINE IN CASE OF EMERGENCY [Concomitant]
  6. VITAMINS [Concomitant]
     Active Substance: VITAMINS
  7. DAILY FISH OIL [Concomitant]
  8. CLARITIN AS NEEDED [Concomitant]

REACTIONS (9)
  - Pruritus [None]
  - Drug abuser [None]
  - Pain of skin [None]
  - Paraesthesia [None]
  - Scratch [None]
  - Skin laceration [None]
  - Urticaria [None]
  - Frustration tolerance decreased [None]
  - Withdrawal syndrome [None]
